FAERS Safety Report 8240450-9 (Version None)
Quarter: 2012Q1

REPORT INFORMATION
  Report Type: 
  Country: None (occurrence: None)
  Receive Date: 20120328
  Receipt Date: 20120320
  Transmission Date: 20120608
  Serious: Yes (Hospitalization, Other)
  Sender: FDA-Public Use
  Company Number: BR-SANOFI-AVENTIS-2012SA019559

PATIENT
  Sex: Male
  Weight: 63 kg

DRUGS (11)
  1. OLMESARTAN MEDOXOMIL [Concomitant]
     Indication: BLOOD PRESSURE
     Route: 048
     Dates: start: 20100101
  2. NOVORAPID [Concomitant]
     Indication: TYPE 2 DIABETES MELLITUS
     Dosage: ACCORDING TO GLYCEMIA
     Route: 058
     Dates: start: 20080101
  3. LANTUS [Suspect]
     Indication: TYPE 2 DIABETES MELLITUS
     Dosage: FORM: AMPOULE
     Route: 058
  4. LANTUS [Suspect]
     Dosage: FORM: CARTRIDGE
     Route: 058
  5. ASPIRIN [Concomitant]
     Indication: ANTICOAGULANT THERAPY
     Route: 048
     Dates: start: 20070101
  6. ATENOLOL [Concomitant]
     Indication: BLOOD PRESSURE
     Route: 048
  7. OMEPRAZOLE [Concomitant]
     Indication: PROPHYLAXIS
     Route: 048
  8. AMLODIPINE [Concomitant]
     Indication: BLOOD PRESSURE
     Route: 060
  9. DEVICE NOS [Suspect]
     Indication: DEVICE THERAPY
  10. METFORMIN HCL [Concomitant]
     Indication: TYPE 2 DIABETES MELLITUS
     Route: 048
  11. SIMVASTATIN [Concomitant]
     Route: 048

REACTIONS (10)
  - COMA [None]
  - INJECTION SITE MASS [None]
  - HYPOGLYCAEMIA [None]
  - INJECTION SITE REACTION [None]
  - INJECTION SITE HAEMATOMA [None]
  - LOSS OF CONSCIOUSNESS [None]
  - HYPERGLYCAEMIA [None]
  - ABNORMAL BEHAVIOUR [None]
  - BLINDNESS [None]
  - HYPERHIDROSIS [None]
